FAERS Safety Report 9546454 (Version 1)
Quarter: 2013Q3

REPORT INFORMATION
  Report Type: Spontaneous
  Country: US (occurrence: US)
  Receive Date: 20130923
  Receipt Date: 20130923
  Transmission Date: 20140515
  Serious: Yes (Other)
  Sender: FDA-Public Use
  Company Number: US-TEVA-433822USA

PATIENT
  Age: 67 Year
  Sex: Female
  Weight: 81.72 kg

DRUGS (17)
  1. NUVIGIL [Suspect]
     Indication: APATHY
     Dates: start: 20130907, end: 20130915
  2. NITROSTAT [Concomitant]
     Indication: CARDIAC DISORDER
  3. ASPIRIN [Concomitant]
     Indication: PROPHYLAXIS
  4. PLAVIX [Concomitant]
     Indication: ANTICOAGULANT THERAPY
  5. RAMIPRIL [Concomitant]
     Indication: HYPERTENSION
  6. CYTOMEL [Concomitant]
     Indication: DEPRESSION
  7. CYMBALTA [Concomitant]
     Indication: DEPRESSION
  8. PRISTIQ [Concomitant]
     Indication: DEPRESSION
  9. PROTONIX [Concomitant]
     Indication: GASTROOESOPHAGEAL REFLUX DISEASE
  10. LOVAZA [Concomitant]
     Indication: HYPERCHOLESTEROLAEMIA
  11. LIALDA [Concomitant]
     Indication: COLITIS
  12. TOPROL XL [Concomitant]
     Indication: HYPERTENSION
  13. NORVASC [Concomitant]
     Indication: HYPERTENSION
  14. PRAVASTATIN [Concomitant]
     Indication: HYPERCHOLESTEROLAEMIA
  15. METFORMIN [Concomitant]
     Indication: DIABETES MELLITUS
  16. BYETTA [Concomitant]
     Indication: DIABETES MELLITUS
  17. IMDUR [Concomitant]
     Indication: CARDIAC DISORDER

REACTIONS (8)
  - Suicidal ideation [Not Recovered/Not Resolved]
  - Diarrhoea [Recovered/Resolved]
  - Dry mouth [Recovered/Resolved]
  - Depression [Not Recovered/Not Resolved]
  - Glossodynia [Recovered/Resolved]
  - Swollen tongue [Recovered/Resolved]
  - Off label use [Recovered/Resolved]
  - Blood glucose increased [Unknown]
